FAERS Safety Report 8208717-8 (Version None)
Quarter: 2012Q1

REPORT INFORMATION
  Report Type: 
  Country: None (occurrence: None)
  Receive Date: 20120314
  Receipt Date: 20120309
  Transmission Date: 20120608
  Serious: Yes (Hospitalization, Other)
  Sender: FDA-Public Use
  Company Number: IT-PFIZER INC-2011268271

PATIENT
  Age: 52 Year
  Sex: Male
  Weight: 114 kg

DRUGS (12)
  1. RIOCIGUAT [Suspect]
     Indication: PULMONARY HYPERTENSION
     Dosage: TITRATION
     Route: 048
     Dates: start: 20110913, end: 20111108
  2. KANRENOL [Concomitant]
     Dosage: UNK
     Dates: start: 20090701
  3. PANTOPRAZOLE SODIUM [Concomitant]
  4. SILDENAFIL CITRATE [Suspect]
     Indication: PULMONARY HYPERTENSION
     Dosage: 60 MG, UNK
     Route: 048
     Dates: start: 20090201
  5. DEURSIL [Concomitant]
     Dosage: UNK
     Dates: start: 20060101
  6. LASIX [Concomitant]
     Dosage: UNK
     Dates: start: 20110624
  7. AUGMENTIN '125' [Concomitant]
     Dosage: UNK
     Dates: start: 20110712, end: 20110802
  8. AMPICILLIN SODIUM/SULBACTAM SODIUM [Concomitant]
     Dosage: UNK
     Dates: start: 20110619, end: 20110625
  9. BLINDED THERAPY [Suspect]
     Dosage: UNK
     Route: 065
     Dates: start: 20110616, end: 20110913
  10. FUROSEMIDE [Concomitant]
     Dosage: UNK
     Dates: start: 20110619, end: 20110623
  11. RIOCIGUAT [Suspect]
     Dosage: 2.5 MG, 3X/DAY
     Dates: start: 20111108
  12. PERIDON [Concomitant]
     Dosage: UNK
     Dates: start: 20120223, end: 20120223

REACTIONS (1)
  - ERYSIPELAS [None]
